FAERS Safety Report 13082312 (Version 1)
Quarter: 2017Q1

REPORT INFORMATION
  Report Type: Spontaneous
  Country: US (occurrence: US)
  Receive Date: 20170103
  Receipt Date: 20170103
  Transmission Date: 20170428
  Serious: Yes (Hospitalization)
  Sender: FDA-Public Use
  Company Number: US-ACTELION-A-US2016-147610

PATIENT
  Age: 69 Year
  Sex: Female

DRUGS (12)
  1. RANITIDINE HCL [Concomitant]
     Active Substance: RANITIDINE HYDROCHLORIDE
  2. TRAZODONE HYDROCHLORIDE. [Concomitant]
     Active Substance: TRAZODONE HYDROCHLORIDE
  3. TRACLEER [Suspect]
     Active Substance: BOSENTAN
     Indication: PULMONARY ARTERIAL HYPERTENSION
     Dosage: 125 MG, UNK
     Route: 048
  4. ADVAIR HFA [Concomitant]
     Active Substance: FLUTICASONE PROPIONATE\SALMETEROL XINAFOATE
  5. ADCIRCA [Concomitant]
     Active Substance: TADALAFIL
  6. HYDROBROMIDE DEXTROMETHORPHAN [Concomitant]
  7. VITAMIN D [Concomitant]
     Active Substance: CHOLECALCIFEROL
  8. CIPROFLOXACIN. [Concomitant]
     Active Substance: CIPROFLOXACIN
  9. CITALOPRAM [Concomitant]
     Active Substance: CITALOPRAM HYDROBROMIDE
  10. ELMIRON [Concomitant]
     Active Substance: PENTOSAN POLYSULFATE SODIUM
  11. CELEBREX [Concomitant]
     Active Substance: CELECOXIB
  12. CLONAZEPAM. [Concomitant]
     Active Substance: CLONAZEPAM

REACTIONS (4)
  - Fall [Unknown]
  - Hip fracture [Unknown]
  - Upper limb fracture [Unknown]
  - Fracture treatment [Unknown]
